FAERS Safety Report 25655195 (Version 1)
Quarter: 2025Q3

REPORT INFORMATION
  Report Type: Spontaneous
  Country: US (occurrence: None)
  Receive Date: 20250806
  Receipt Date: 20250806
  Transmission Date: 20251020
  Serious: Yes (Life-Threatening, Hospitalization, Disabling)
  Sender: FDA-CTU
  Company Number: None

PATIENT
  Age: 34 Year
  Sex: Female
  Weight: 58.06 kg

DRUGS (5)
  1. MORPHINE [Suspect]
     Active Substance: MORPHINE
     Indication: Hip fracture
     Route: 040
     Dates: start: 20250729
  2. MORPHINE [Suspect]
     Active Substance: MORPHINE
     Indication: Femur fracture
  3. DILAUDID [Suspect]
     Active Substance: HYDROMORPHONE HYDROCHLORIDE
     Dates: start: 20250729
  4. OFIRMEV [Suspect]
     Active Substance: ACETAMINOPHEN
     Route: 042
  5. ROXICODONE [Suspect]
     Active Substance: OXYCODONE HYDROCHLORIDE
     Route: 048

REACTIONS (7)
  - Accidental overdose [None]
  - Cardiac arrest [None]
  - Dialysis [None]
  - Fall [None]
  - Renal transplant [None]
  - Pancreas transplant [None]
  - Brain death [None]

NARRATIVE: CASE EVENT DATE: 20250729
